FAERS Safety Report 4831245-4 (Version None)
Quarter: 2005Q4

REPORT INFORMATION
  Report Type: 
  Country: None (occurrence: None)
  Receive Date: 20051118
  Receipt Date: 20051111
  Transmission Date: 20060501
  Serious: Yes (Death, Other)
  Sender: FDA-Public Use
  Company Number: US-JNJFOC-20051103323

PATIENT
  Sex: Female

DRUGS (1)
  1. NATRECOR [Suspect]
     Route: 042

REACTIONS (1)
  - RENAL FAILURE ACUTE [None]
